FAERS Safety Report 22180962 (Version 1)
Quarter: 2023Q2

REPORT INFORMATION
  Report Type: Spontaneous
  Country: IE (occurrence: IE)
  Receive Date: 20230406
  Receipt Date: 20230406
  Transmission Date: 20230721
  Serious: Yes (Other)
  Sender: FDA-Public Use
  Company Number: IE-MYLANLABS-2023M1035928

PATIENT
  Age: 26 Year
  Sex: Female

DRUGS (4)
  1. HYDROCORTISONE [Suspect]
     Active Substance: HYDROCORTISONE
     Indication: Reticular erythematous mucinosis
     Dosage: UNK
     Route: 065
  2. BETAMETHASONE VALERATE [Suspect]
     Active Substance: BETAMETHASONE VALERATE
     Indication: Reticular erythematous mucinosis
     Dosage: UNK
     Route: 065
  3. FUSIDIC ACID [Suspect]
     Active Substance: FUSIDIC ACID
     Indication: Reticular erythematous mucinosis
     Dosage: UNK
     Route: 065
  4. MICONAZOLE [Suspect]
     Active Substance: MICONAZOLE
     Indication: Reticular erythematous mucinosis
     Dosage: UNK
     Route: 061

REACTIONS (1)
  - Drug ineffective [Unknown]
